FAERS Safety Report 8563010 (Version 3)
Quarter: 2013Q4

REPORT INFORMATION
  Report Type: Report from Study
  Country: US (occurrence: US)
  Receive Date: 20120515
  Receipt Date: 20131118
  Transmission Date: 20140711
  Serious: Yes (Death, Life-Threatening, Other)
  Sender: FDA-Public Use
  Company Number: US-ROCHE-650763

PATIENT
  Sex: 0

DRUGS (3)
  1. PEG-INTERFERON ALFA 2A [Suspect]
     Indication: HEPATITIS C
     Route: 065
  2. RIBAVIRIN [Suspect]
     Indication: HEPATITIS C
     Dosage: DOSE: 1000-1200 MG/DAY OR 1000-1200 MG/DAY
     Route: 048
  3. PEGINTERFERON ALFA-2B [Suspect]
     Indication: HEPATITIS C
     Dosage: 1.5 UG/KG/WEEK OR 1 UG/KG/WEEK
     Route: 065

REACTIONS (15)
  - Myocardial infarction [Fatal]
  - Death [Fatal]
  - Cardiovascular disorder [Unknown]
  - Gastrointestinal disorder [Unknown]
  - Infection [Unknown]
  - Neoplasm [Unknown]
  - Nervous system disorder [Unknown]
  - Mental disorder [Unknown]
  - Respiratory disorder [Unknown]
  - Blood disorder [Unknown]
  - Depression [Unknown]
  - Hepatobiliary disease [Unknown]
  - Sepsis [Unknown]
  - Neutropenia [Unknown]
  - Lymphopenia [Unknown]
